FAERS Safety Report 8553600-1 (Version None)
Quarter: 2012Q3

REPORT INFORMATION
  Report Type: 
  Country: None (occurrence: None)
  Receive Date: 20120731
  Receipt Date: 20120726
  Transmission Date: 20120928
  Serious: Yes (Hospitalization)
  Sender: FDA-Public Use
  Company Number: US-GILEAD-2012-0056160

PATIENT
  Sex: Female

DRUGS (1)
  1. LETAIRIS [Suspect]
     Indication: PULMONARY HYPERTENSION
     Dosage: 10 MG, UNK
     Route: 048
     Dates: start: 20110819

REACTIONS (9)
  - PNEUMONIA [None]
  - BLOOD GLUCOSE DECREASED [None]
  - DYSPNOEA [None]
  - SYNCOPE [None]
  - UNEVALUABLE EVENT [None]
  - DIZZINESS [None]
  - HYPOPHAGIA [None]
  - MALAISE [None]
  - COUGH [None]
